FAERS Safety Report 11451383 (Version 1)
Quarter: 2015Q3

REPORT INFORMATION
  Report Type: Spontaneous
  Country: US (occurrence: US)
  Receive Date: 20150903
  Receipt Date: 20150903
  Transmission Date: 20151125
  Serious: No
  Sender: FDA-Public Use
  Company Number: US-SUN PHARMACEUTICAL INDUSTRIES LTD-2014SUN01802

PATIENT

DRUGS (1)
  1. GLIPIZIDE 5 MG TABLET [Suspect]
     Active Substance: GLIPIZIDE
     Indication: BLOOD GLUCOSE INCREASED
     Route: 065

REACTIONS (1)
  - Drug ineffective [Unknown]
